FAERS Safety Report 7634216-8 (Version None)
Quarter: 2011Q3

REPORT INFORMATION
  Report Type: 
  Country: None (occurrence: None)
  Receive Date: 20110725
  Receipt Date: 20110426
  Transmission Date: 20111222
  Serious: No
  Sender: FDA-Public Use
  Company Number: US-MYLANLABS-2011S1008786

PATIENT
  Age: 95 Year
  Sex: Female

DRUGS (1)
  1. CLONIDINE [Suspect]
     Indication: BLOOD PRESSURE INCREASED
     Dosage: CHANGED QW.
     Route: 062

REACTIONS (1)
  - RASH [None]
